FAERS Safety Report 7972998-6 (Version None)
Quarter: 2011Q4

REPORT INFORMATION
  Report Type: 
  Country: None (occurrence: None)
  Receive Date: 20111122
  Receipt Date: 20110816
  Transmission Date: 20120403
  Serious: No
  Sender: FDA-Public Use
  Company Number: PHHY2011US51101

PATIENT
  Age: 61 Year
  Sex: Female
  Weight: 113 kg

DRUGS (2)
  1. GILENYA [Suspect]
     Indication: MULTIPLE SCLEROSIS
     Dosage: 0.5MG, QD, ORAL
     Route: 048
     Dates: start: 20110420
  2. GILENYA [Suspect]
     Dosage: 0.5 MG, QD, ORAL
     Route: 048
     Dates: start: 20110608, end: 20110816

REACTIONS (7)
  - BLOOD PRESSURE DECREASED [None]
  - BALANCE DISORDER [None]
  - ASTHENIA [None]
  - ABNORMAL SENSATION IN EYE [None]
  - DYSPNOEA [None]
  - DIZZINESS [None]
  - HEART RATE DECREASED [None]
